FAERS Safety Report 8330295-3 (Version None)
Quarter: 2012Q2

REPORT INFORMATION
  Report Type: 
  Country: None (occurrence: None)
  Receive Date: 20120502
  Receipt Date: 20120424
  Transmission Date: 20120825
  Serious: Yes (Hospitalization, Other)
  Sender: FDA-Public Use
  Company Number: PHEH2012US007641

PATIENT
  Sex: Female

DRUGS (17)
  1. LASIX [Concomitant]
     Dosage: 20 MG DAILY
  2. ZOFRAN [Concomitant]
     Indication: NAUSEA
     Dosage: 8 MG EVERY 8 HOURS AS NEEDED
  3. TIMOPTIC [Concomitant]
  4. MULTIVITAMIN [Concomitant]
     Dosage: 1 DF, UNK
  5. ASACOL [Concomitant]
     Dosage: 800 MG, BID
  6. SODIUM BICARBONATE [Concomitant]
     Dosage: 650 MG DAILY
  7. TYLENOL (CAPLET) [Concomitant]
     Indication: PAIN
     Dosage: 500 TO 1000 MG EVERY 4 HOURS AS NEEDED
  8. MULTI-VITAMINS [Concomitant]
     Dosage: 1 DF, UNK
  9. AMLODIPINE [Concomitant]
     Dosage: 5 MG DAILY
  10. POTASSIUM CHLORIDE [Concomitant]
     Dosage: 20 MEQ, DAILY
  11. CALCIUM CARBONATE [Concomitant]
     Dosage: 600 MG, BID
  12. VITAMIN D [Concomitant]
     Dosage: 1000 UNITS DAILY
  13. WARFARIN SODIUM [Concomitant]
  14. AFINITOR [Suspect]
     Indication: RENAL CELL CARCINOMA
     Dosage: 10 MG, DAILY
     Route: 048
     Dates: start: 20120120, end: 20120314
  15. LEVOTHYROXINE SODIUM [Concomitant]
     Dosage: 100 MCG DAILY
  16. FOLIC ACID [Concomitant]
     Dosage: 1 MG DAILY
  17. SODIUM CHLORIDE [Concomitant]
     Dosage: 1 G, TID

REACTIONS (6)
  - MALAISE [None]
  - LUNG CONSOLIDATION [None]
  - LUNG INFILTRATION [None]
  - ASTHENIA [None]
  - FATIGUE [None]
  - DYSPNOEA [None]
